FAERS Safety Report 4267099-7 (Version None)
Quarter: 2004Q1

REPORT INFORMATION
  Report Type: 
  Country: None (occurrence: None)
  Receive Date: 20040107
  Receipt Date: 20030930
  Transmission Date: 20041129
  Serious: Yes (Death, Other)
  Sender: FDA-Public Use
  Company Number: HQ8462214NOV2001

PATIENT
  Sex: Female

DRUGS (13)
  1. DIMETAPP [Suspect]
     Dosage: ^1 PILL AT A TIME, APPROXIMATELY 3 WITHIN 24 HOUR PERIOD^, ORAL
     Route: 048
  2. ALKA-SELTZER PLUS COLD (ACETYLSALICYLIC ACID/CHLORPHENAMINE MALEATE/PH [Suspect]
     Indication: HYPERSENSITIVITY
     Dosage: ORAL
     Route: 048
  3. ALKA-SELTZER PLUS COLD (ACETYLSALICYLIC ACID/CHLORPHENAMINE MALEATE/PH [Suspect]
     Indication: INFLUENZA
     Dosage: ORAL
     Route: 048
  4. ALKA-SELTZER PLUS COLD (ACETYLSALICYLIC ACID/CHLORPHENAMINE MALEATE/PH [Suspect]
     Indication: NASOPHARYNGITIS
     Dosage: ORAL
     Route: 048
  5. CONTAC [Suspect]
     Indication: INFLUENZA
     Dosage: ORAL
     Route: 048
  6. CONTAC [Suspect]
     Indication: NASOPHARYNGITIS
     Dosage: ORAL
     Route: 048
  7. DEXATRIM (CAFFEINE/PHENYLPROPANOLAMINE HYDROCHLORIDE, ) [Suspect]
     Dosage: ORAL
     Route: 048
  8. ROBITUSSIN CF (GUAIFENESIN/DEXTROMETHORPHAN/PHENYLPROPANOLAMINE, SYRUP [Suspect]
     Indication: HYPERSENSITIVITY
     Dosage: ^2 TEASPOONS/APPROX 8 WITHIN 24-HOURS^ OFF AND ON, ORAL
     Route: 048
  9. ROBITUSSIN CF (GUAIFENESIN/DEXTROMETHORPHAN/PHENYLPROPANOLAMINE, SYRUP [Suspect]
     Indication: INFLUENZA
     Dosage: ^2 TEASPOONS/APPROX 8 WITHIN 24-HOURS^ OFF AND ON, ORAL
     Route: 048
  10. ROBITUSSIN CF (GUAIFENESIN/DEXTROMETHORPHAN/PHENYLPROPANOLAMINE, SYRUP [Suspect]
     Indication: NASOPHARYNGITIS
     Dosage: ^2 TEASPOONS/APPROX 8 WITHIN 24-HOURS^ OFF AND ON, ORAL
     Route: 048
  11. TAVIST D [Suspect]
  12. UNSPECIFIED ANTIHYPERTENSIVE AGENT (UNSPECIFIED ANTIHYPERTENSIVE AGENT [Concomitant]
  13. UNSPECIFIED DIURETIC (UNSPECIFIED DIURETIC) [Concomitant]

REACTIONS (2)
  - CEREBROVASCULAR ACCIDENT [None]
  - MYOCARDIAL INFARCTION [None]
